FAERS Safety Report 21998683 (Version 1)
Quarter: 2023Q1

REPORT INFORMATION
  Report Type: Spontaneous
  Country: AU (occurrence: AU)
  Receive Date: 20230216
  Receipt Date: 20230216
  Transmission Date: 20230418
  Serious: Yes (Hospitalization)
  Sender: FDA-Public Use
  Company Number: None

PATIENT

DRUGS (16)
  1. ACETAMINOPHEN [Suspect]
     Active Substance: ACETAMINOPHEN
     Indication: Product used for unknown indication
     Dosage: 500 MG
     Route: 065
  2. CARVEDILOL [Suspect]
     Active Substance: CARVEDILOL
     Dosage: 25MG
     Route: 048
  3. CLOZAPINE [Suspect]
     Active Substance: CLOZAPINE
     Dosage: 12.5 MG
     Dates: start: 20220704, end: 20220704
  4. FLUOXETINE [Suspect]
     Active Substance: FLUOXETINE HYDROCHLORIDE
     Dosage: DOSE: 40 MILLIGRAM , INTERVAL: 1 DAY
     Route: 048
  5. GLICLAZIDE [Suspect]
     Active Substance: GLICLAZIDE
     Indication: Type 2 diabetes mellitus
     Dosage: DOSE: 120 MILLIGRAM , INTERVAL: 1 DAY
     Route: 048
  6. JARDIANCE [Suspect]
     Active Substance: EMPAGLIFLOZIN
     Indication: Type 2 diabetes mellitus
     Dosage: DOSE: 10 MILLIGRAM , DOSE FORM: TABLET
     Route: 048
  7. LIPIDIL [Suspect]
     Active Substance: FENOFIBRATE
     Indication: Blood cholesterol increased
     Dosage: DOSE: 145 MILLIGRAM , INTERVAL: 1 DAY
     Route: 048
  8. LIPITOR [Suspect]
     Active Substance: ATORVASTATIN CALCIUM
     Indication: Blood cholesterol increased
     Dosage: DOSE: 80 MILLIGRAM , DOSE FORM: TABLET
     Route: 048
  9. LITHIUM CARBONATE [Suspect]
     Active Substance: LITHIUM CARBONATE
     Dosage: DOSE: 750 MILLIGRAM , DOSE FORM: TABLET
     Route: 048
  10. METFORMIN [Suspect]
     Active Substance: METFORMIN HYDROCHLORIDE
     Indication: Type 2 diabetes mellitus
     Dosage: DOSE: 1000 MILLIGRAM
     Route: 048
  11. OZEMPIC [Suspect]
     Active Substance: SEMAGLUTIDE
     Indication: Type 2 diabetes mellitus
     Dosage: DOSE: 1 MILLIGRAM , INTERVAL: 1 WEEK
     Route: 058
     Dates: start: 20220324
  12. PERINDOPRIL [Suspect]
     Active Substance: PERINDOPRIL
     Dosage: DOSE: 10 MILLIGRAM , INTERVAL: 1 DAY
     Route: 048
  13. REXULTI [Suspect]
     Active Substance: BREXPIPRAZOLE
     Dosage: DOSE: 4 MILLIGRAM , INTERVAL: 1 DAY
     Route: 048
  14. SEROQUEL [Suspect]
     Active Substance: QUETIAPINE FUMARATE
     Dosage: DOSE: 25 MILLIGRAM , DOSE FORM: TABLET
     Route: 048
  15. ZELDOX [Suspect]
     Active Substance: ZIPRASIDONE
     Dosage: DOSE: 40 MILLIGRAM , DOSE FORM: CAPSULE
     Route: 048
  16. LINOLENIC ACID [Concomitant]
     Active Substance: LINOLENIC ACID
     Dosage: DOSE: 1000 MILLIGRAM , DOSE FORM: CAPSULE
     Route: 048

REACTIONS (4)
  - Cardiomyopathy [Unknown]
  - Overdose [Unknown]
  - Hypersensitivity [Unknown]
  - Hypotension [Recovered/Resolved]

NARRATIVE: CASE EVENT DATE: 20220625
